FAERS Safety Report 17458024 (Version 1)
Quarter: 2020Q1

REPORT INFORMATION
  Report Type: Spontaneous
  Country: US (occurrence: US)
  Receive Date: 20200225
  Receipt Date: 20200225
  Transmission Date: 20200409
  Serious: No
  Sender: FDA-Public Use
  Company Number: US-ROCHE-2516746

PATIENT
  Age: 66 Year
  Sex: Female
  Weight: 81.72 kg

DRUGS (1)
  1. XOFLUZA [Suspect]
     Active Substance: BALOXAVIR MARBOXIL
     Indication: INFLUENZA
     Dosage: 2 PILLS 1 TIME DOSE ;ONGOING: NO
     Route: 048
     Dates: start: 20190104

REACTIONS (4)
  - Drug ineffective [Unknown]
  - Cough [Not Recovered/Not Resolved]
  - Body temperature increased [Not Recovered/Not Resolved]
  - Pyrexia [Not Recovered/Not Resolved]

NARRATIVE: CASE EVENT DATE: 202001
